FAERS Safety Report 22339806 (Version 10)
Quarter: 2024Q2

REPORT INFORMATION
  Report Type: Report from Study
  Country: US (occurrence: US)
  Receive Date: 20230518
  Receipt Date: 20240612
  Transmission Date: 20240716
  Serious: Yes (Other)
  Sender: FDA-Public Use
  Company Number: US-002147023-NVSC2023US110941

PATIENT
  Age: 61 Year
  Sex: Female

DRUGS (2)
  1. KESIMPTA [Suspect]
     Active Substance: OFATUMUMAB
     Indication: Relapsing multiple sclerosis
     Dosage: 20 MG, QMO
     Route: 058
     Dates: start: 20230305
  2. KESIMPTA [Suspect]
     Active Substance: OFATUMUMAB
     Dosage: 20 MG, QMO
     Route: 058
     Dates: start: 202304

REACTIONS (19)
  - Malignant melanoma [Recovered/Resolved]
  - Pain in extremity [Unknown]
  - Gait disturbance [Unknown]
  - Feeling abnormal [Unknown]
  - Stress [Unknown]
  - Muscular weakness [Unknown]
  - Depression [Unknown]
  - Injection site bruising [Recovered/Resolved]
  - Therapeutic response shortened [Unknown]
  - Limb discomfort [Unknown]
  - Urinary tract infection [Unknown]
  - Blood immunoglobulin G decreased [Unknown]
  - Blood immunoglobulin M decreased [Unknown]
  - Cardiac disorder [Unknown]
  - Urticaria [Unknown]
  - Malaise [Unknown]
  - Memory impairment [Unknown]
  - Fatigue [Unknown]
  - Inappropriate schedule of product administration [Unknown]

NARRATIVE: CASE EVENT DATE: 20230512
